FAERS Safety Report 7806041-6 (Version None)
Quarter: 2011Q4

REPORT INFORMATION
  Report Type: 
  Country: None (occurrence: None)
  Receive Date: 20111011
  Receipt Date: 20110922
  Transmission Date: 20120403
  Serious: Yes (Hospitalization)
  Sender: FDA-Public Use
  Company Number: US-JNJFOC-20110407229

PATIENT
  Sex: Male
  Weight: 66.6 kg

DRUGS (5)
  1. REMICADE [Suspect]
     Route: 042
     Dates: start: 20100907
  2. ABILIFY [Suspect]
     Indication: AFFECTIVE DISORDER
     Dates: start: 20110101
  3. REMICADE [Suspect]
     Route: 042
     Dates: start: 20090213
  4. MERCAPTOPURINE [Concomitant]
  5. REMICADE [Suspect]
     Indication: INFLAMMATORY BOWEL DISEASE
     Route: 042
     Dates: start: 20101231

REACTIONS (1)
  - SUICIDAL IDEATION [None]
